FAERS Safety Report 11230508 (Version 1)
Quarter: 2015Q2

REPORT INFORMATION
  Report Type: Spontaneous
  Country: US (occurrence: None)
  Receive Date: 20150630
  Receipt Date: 20150630
  Transmission Date: 20150821
  Serious: Yes (Hospitalization)
  Sender: FDA-Public Use
  Company Number: None

PATIENT
  Age: 71 Year
  Sex: Male
  Weight: 107.05 kg

DRUGS (12)
  1. TAMSULOSIN [Concomitant]
     Active Substance: TAMSULOSIN
  2. CHROMATE. [Concomitant]
     Active Substance: CHROMATE
  3. BEYOND OSTEO FX [Concomitant]
  4. PHYTOMAS [Concomitant]
  5. PHYTOLEAN [Concomitant]
  6. SPIRIVA [Concomitant]
     Active Substance: TIOTROPIUM BROMIDE MONOHYDRATE
  7. ULTIMATE EFA PLUS [Concomitant]
  8. TANGY TANGERINE [Concomitant]
  9. AMBIEN [Concomitant]
     Active Substance: ZOLPIDEM TARTRATE
  10. CONTRAVE [Suspect]
     Active Substance: BUPROPION HYDROCHLORIDE\NALTREXONE HYDROCHLORIDE
     Indication: WEIGHT DECREASED
     Dosage: 1 PILL PER DAY FOR 7 DAYS, ONCE DAILY, TAKEN BY MOUTH
     Route: 048
     Dates: start: 20150626
  11. TRAMADOL [Concomitant]
     Active Substance: TRAMADOL
  12. REQUIP [Concomitant]
     Active Substance: ROPINIROLE HYDROCHLORIDE

REACTIONS (3)
  - Restlessness [None]
  - Self injurious behaviour [None]
  - Fear [None]

NARRATIVE: CASE EVENT DATE: 20150626
